FAERS Safety Report 11235976 (Version 1)
Quarter: 2015Q3

REPORT INFORMATION
  Report Type: Spontaneous
  Country: US (occurrence: US)
  Receive Date: 20150702
  Receipt Date: 20150702
  Transmission Date: 20151125
  Serious: No
  Sender: FDA-Public Use
  Company Number: US-TAKEDA-2015TUS002969

PATIENT
  Age: 77 Year
  Sex: Male

DRUGS (5)
  1. CONTRAVE [Suspect]
     Active Substance: BUPROPION HYDROCHLORIDE\NALTREXONE HYDROCHLORIDE
     Dosage: UNK, BID
     Route: 048
     Dates: start: 20150120, end: 20150127
  2. PRADAXA [Concomitant]
     Active Substance: DABIGATRAN ETEXILATE MESYLATE
  3. CONTRAVE [Suspect]
     Active Substance: BUPROPION HYDROCHLORIDE\NALTREXONE HYDROCHLORIDE
     Dosage: 2 TABLETS, BID
     Route: 048
     Dates: start: 20150203
  4. CONTRAVE [Suspect]
     Active Substance: BUPROPION HYDROCHLORIDE\NALTREXONE HYDROCHLORIDE
     Dosage: 2 TABLETS IN THE MORNING AND ONE TABLET IN THE EVENING
     Route: 048
     Dates: start: 20150127, end: 20150203
  5. CONTRAVE [Suspect]
     Active Substance: BUPROPION HYDROCHLORIDE\NALTREXONE HYDROCHLORIDE
     Indication: OVERWEIGHT
     Dosage: UNK, QD
     Route: 048
     Dates: start: 20150113, end: 20150120

REACTIONS (5)
  - Joint swelling [Unknown]
  - Rash [Recovering/Resolving]
  - Rash generalised [Recovering/Resolving]
  - Peripheral swelling [Unknown]
  - Skin exfoliation [Not Recovered/Not Resolved]

NARRATIVE: CASE EVENT DATE: 201503
